FAERS Safety Report 23078358 (Version 6)
Quarter: 2024Q2

REPORT INFORMATION
  Report Type: Spontaneous
  Country: CA (occurrence: CA)
  Receive Date: 20231018
  Receipt Date: 20240507
  Transmission Date: 20240716
  Serious: Yes (Other)
  Sender: FDA-Public Use
  Company Number: CA-PFIZER INC-202300238397

PATIENT
  Age: 40 Year
  Sex: Male

DRUGS (2)
  1. ABRILADA [Suspect]
     Active Substance: ADALIMUMAB-AFZB
     Indication: Colitis ulcerative
     Dosage: 1 DF, WK0: 160 MG, WK2: 80MG, THEN 40MG EVERY OTHER WK STARTING WEEK 4
     Route: 058
     Dates: start: 20230727
  2. PREDNISONE [Concomitant]
     Active Substance: PREDNISONE
     Dosage: 40 MG

REACTIONS (6)
  - Accidental exposure to product [Unknown]
  - Device malfunction [Unknown]
  - Exposure via skin contact [Unknown]
  - Colitis ulcerative [Unknown]
  - Aphthous ulcer [Unknown]
  - Condition aggravated [Not Recovered/Not Resolved]

NARRATIVE: CASE EVENT DATE: 20230101
